FAERS Safety Report 20427246 (Version 1)
Quarter: 2022Q1

REPORT INFORMATION
  Report Type: Report from Study
  Country: US (occurrence: US)
  Receive Date: 20220204
  Receipt Date: 20220204
  Transmission Date: 20220424
  Serious: No
  Sender: FDA-Public Use
  Company Number: US-EXELIXIS-CABO-21043536

PATIENT
  Sex: Male

DRUGS (1)
  1. CABOMETYX [Suspect]
     Active Substance: CABOZANTINIB S-MALATE
     Indication: Renal cell carcinoma
     Dosage: 60 MG, QD
     Dates: start: 202107

REACTIONS (5)
  - Swelling [Not Recovered/Not Resolved]
  - Blister [Recovering/Resolving]
  - Blood pressure fluctuation [Recovering/Resolving]
  - Gingival bleeding [Unknown]
  - Diarrhoea [Recovered/Resolved]
